FAERS Safety Report 16809851 (Version 1)
Quarter: 2019Q3

REPORT INFORMATION
  Report Type: Spontaneous
  Country: US (occurrence: US)
  Receive Date: 20190725
  Receipt Date: 20190725
  Transmission Date: 20191005
  Serious: Yes (Other)
  Sender: FDA-Public Use
  Company Number: None

PATIENT
  Age: 40 Year
  Sex: Female
  Weight: 97.98 kg

DRUGS (1)
  1. GLATIRAMER ACETATE 40MG/ML [Suspect]
     Active Substance: GLATIRAMER ACETATE
     Indication: MULTIPLE SCLEROSIS
     Route: 058
     Dates: start: 20190416, end: 20190703

REACTIONS (5)
  - Injection site swelling [None]
  - Injection site pain [None]
  - Injection site urticaria [None]
  - Injection site erythema [None]
  - Injection site reaction [None]

NARRATIVE: CASE EVENT DATE: 20190703
